FAERS Safety Report 10196343 (Version 2)
Quarter: 2014Q2

REPORT INFORMATION
  Report Type: Spontaneous
  Country: US (occurrence: US)
  Receive Date: 20140527
  Receipt Date: 20140527
  Transmission Date: 20141212
  Serious: No
  Sender: FDA-Public Use
  Company Number: US-JNJFOC-20120708556

PATIENT
  Sex: Female
  Weight: 49.9 kg

DRUGS (5)
  1. RISPERIDONE [Suspect]
     Indication: ANXIETY
     Route: 048
     Dates: start: 2010, end: 2012
  2. RISPERIDONE [Suspect]
     Indication: DEPRESSION
     Route: 048
     Dates: start: 2010, end: 2012
  3. INVEGA [Suspect]
     Indication: ANXIETY
     Route: 048
     Dates: start: 2012
  4. INVEGA [Suspect]
     Indication: DEPRESSION
     Route: 048
     Dates: start: 2012
  5. LEXAPRO [Concomitant]
     Indication: DEPRESSION
     Route: 048
     Dates: start: 2010

REACTIONS (4)
  - Mood swings [Recovering/Resolving]
  - Irritability [Recovering/Resolving]
  - Fatigue [Recovering/Resolving]
  - Drug ineffective [Not Recovered/Not Resolved]
